FAERS Safety Report 9241471 (Version 2)
Quarter: 2013Q2

REPORT INFORMATION
  Report Type: Report from Study
  Country: US (occurrence: US)
  Receive Date: 20130419
  Receipt Date: 20130617
  Transmission Date: 20140414
  Serious: Yes (Other)
  Sender: FDA-Public Use
  Company Number: US-ASTELLAS-2013US004269

PATIENT
  Age: 69 Year
  Sex: Female

DRUGS (2)
  1. ERLOTINIB TABLET [Suspect]
     Indication: NEOPLASM MALIGNANT
     Dosage: 150 MG, UID/QD
     Route: 048
     Dates: start: 20121001, end: 20121015
  2. XELODA [Suspect]
     Indication: NEOPLASM MALIGNANT
     Dosage: UNK
     Route: 065

REACTIONS (7)
  - Eye disorder [Unknown]
  - Melaena [Unknown]
  - Malignant neoplasm progression [Unknown]
  - Insomnia [Unknown]
  - Nausea [Recovered/Resolved]
  - Malaise [Unknown]
  - Malaise [Unknown]
